FAERS Safety Report 17142125 (Version 1)
Quarter: 2019Q4

REPORT INFORMATION
  Report Type: Spontaneous
  Country: US (occurrence: US)
  Receive Date: 20191211
  Receipt Date: 20191211
  Transmission Date: 20200122
  Serious: Yes (Hospitalization)
  Sender: FDA-Public Use
  Company Number: US-ASTRAZENECA-2019SF75249

PATIENT
  Age: 469 Day
  Sex: Female

DRUGS (1)
  1. SYNAGIS [Suspect]
     Active Substance: PALIVIZUMAB
     Dosage: MONTHLY
     Route: 030

REACTIONS (2)
  - Bronchiolitis [Recovered/Resolved]
  - Corona virus infection [Recovered/Resolved]

NARRATIVE: CASE EVENT DATE: 20191125
